FAERS Safety Report 8586464-0 (Version None)
Quarter: 2012Q3

REPORT INFORMATION
  Report Type: 
  Country: None (occurrence: None)
  Receive Date: 20120810
  Receipt Date: 20120802
  Transmission Date: 20120928
  Serious: Yes (Hospitalization)
  Sender: FDA-Public Use
  Company Number: FR-ROCHE-1088437

PATIENT
  Sex: Female
  Weight: 89 kg

DRUGS (8)
  1. SPASFON [Concomitant]
     Dates: start: 20120706, end: 20120730
  2. DOCETAXEL [Suspect]
     Indication: BREAST CANCER
     Dosage: LAST DOSE PRIOR TO SAE 31 JAN 2012
     Route: 042
     Dates: start: 20111005
  3. WYTENS [Concomitant]
     Dates: start: 20100101
  4. ACETAMINOPHEN [Concomitant]
     Dates: start: 20110101
  5. HERCEPTIN [Suspect]
     Indication: BREAST CANCER
     Dosage: LAST DOSE PRIOR TO SAE: 26/JUN/2012
     Route: 042
     Dates: start: 20111005, end: 20120626
  6. ABUFENE [Concomitant]
     Dates: start: 20111104
  7. HERCEPTIN [Suspect]
     Dosage: RESTARTED
     Dates: start: 20120730
  8. TAMOXIFEN CITRATE [Concomitant]
     Dates: start: 20120711

REACTIONS (2)
  - CHOLELITHIASIS [None]
  - PANCREATITIS [None]
